FAERS Safety Report 9854766 (Version 1)
Quarter: 2014Q1

REPORT INFORMATION
  Report Type: Spontaneous
  Country: US (occurrence: US)
  Receive Date: 20140130
  Receipt Date: 20140130
  Transmission Date: 20141002
  Serious: Yes (Other)
  Sender: FDA-Public Use
  Company Number: US-PFIZER INC-2014027378

PATIENT
  Sex: Female
  Weight: 63.49 kg

DRUGS (1)
  1. GABAPENTIN [Suspect]
     Indication: FIBROMYALGIA
     Dosage: 100 MG, 2X/DAY
     Dates: start: 2013, end: 20140126

REACTIONS (2)
  - Off label use [Unknown]
  - Diplopia [Not Recovered/Not Resolved]
